FAERS Safety Report 14166868 (Version 1)
Quarter: 2017Q4

REPORT INFORMATION
  Report Type: Report from Study
  Country: DE (occurrence: DE)
  Receive Date: 20171107
  Receipt Date: 20171107
  Transmission Date: 20180321
  Serious: Yes (Hospitalization, Other)
  Sender: FDA-Public Use
  Company Number: DE-PFIZER INC-2017472803

PATIENT
  Age: 50 Year
  Sex: Male
  Weight: 70.9 kg

DRUGS (4)
  1. CERTICAN [Suspect]
     Active Substance: EVEROLIMUS
     Indication: RENAL TRANSPLANT
     Dosage: 1.5 MG, 2X/DAY
     Route: 048
     Dates: start: 20130702
  2. LONOLOX [Suspect]
     Active Substance: MINOXIDIL
     Dosage: UNK
     Dates: start: 20130709, end: 20130728
  3. SANDIMMUN [Concomitant]
     Active Substance: CYCLOSPORINE
     Dosage: 100 MG, 2X/DAY
     Dates: start: 20130702
  4. PREDNISOLONE. [Concomitant]
     Active Substance: PREDNISOLONE
     Dosage: 10 MG, 1X/DAY
     Route: 048
     Dates: start: 20130702

REACTIONS (3)
  - Post procedural haematoma [Recovered/Resolved]
  - Complications of transplanted kidney [Recovered/Resolved]
  - Kidney transplant rejection [Recovered/Resolved]

NARRATIVE: CASE EVENT DATE: 20130723
